FAERS Safety Report 5510042-0 (Version None)
Quarter: 2007Q4

REPORT INFORMATION
  Report Type: 
  Country: None (occurrence: None)
  Receive Date: 20071108
  Receipt Date: 20070419
  Transmission Date: 20080405
  Serious: No
  Sender: FDA-Public Use
  Company Number: US-ABBOTT-07P-163-0365711-00

PATIENT
  Sex: Male
  Weight: 74.91 kg

DRUGS (2)
  1. CLARITHROMYCIN [Suspect]
     Indication: LYME DISEASE
     Route: 048
     Dates: start: 20061101
  2. HYDROXYCHLOROQUINE PHOSPHATE [Concomitant]
     Indication: DRUG USE FOR UNKNOWN INDICATION

REACTIONS (1)
  - RASH [None]
